FAERS Safety Report 19515279 (Version 1)
Quarter: 2021Q3

REPORT INFORMATION
  Report Type: Spontaneous
  Country: CA (occurrence: CA)
  Receive Date: 20210709
  Receipt Date: 20210709
  Transmission Date: 20211014
  Serious: Yes (Hospitalization, Other)
  Sender: FDA-Public Use
  Company Number: CA-ALLERGAN-2124610US

PATIENT
  Sex: Female
  Weight: 86 kg

DRUGS (12)
  1. INFLECTRA [Suspect]
     Active Substance: INFLIXIMAB-DYYB
     Dosage: 10 MG Q4 WEEKS / 500 MILLIGRAM; FREQUENCY: 0,2,6, AND THEN EVERY 8 WEEKS
     Route: 042
     Dates: start: 20210322, end: 20210322
  2. INFLECTRA [Suspect]
     Active Substance: INFLIXIMAB-DYYB
     Dosage: 500 MILLIGRAM; FREQUENCY: 0,2,6, AND THEN EVERY 8 WEEKS
     Dates: start: 20201231, end: 20201231
  3. INFLECTRA [Suspect]
     Active Substance: INFLIXIMAB-DYYB
     Indication: COLITIS ULCERATIVE
     Dosage: 500 MG; FREQUENCY: 0,2,6, AND THEN EVERY 8 WEEKS
     Dates: start: 20210521, end: 20210521
  4. INFLECTRA [Suspect]
     Active Substance: INFLIXIMAB-DYYB
     Dosage: 10 MG/KG
     Route: 042
     Dates: start: 20210322, end: 20210322
  5. INFLECTRA [Suspect]
     Active Substance: INFLIXIMAB-DYYB
     Dosage: 500 MILLIGRAM; FREQUENCY: 0,2,6, AND THEN EVERY 8 WEEKS
     Dates: start: 20210322, end: 20210322
  6. INFLECTRA [Suspect]
     Active Substance: INFLIXIMAB-DYYB
     Dosage: 500 MG; FREQUENCY: 0,2,6, AND THEN EVERY 8 WEEKS
     Route: 042
     Dates: start: 20201120, end: 20201231
  7. PREDNISONE. [Concomitant]
     Active Substance: PREDNISONE
     Dosage: TAPERED
     Dates: end: 202105
  8. ASACOL [Suspect]
     Active Substance: MESALAMINE
     Indication: PRODUCT USED FOR UNKNOWN INDICATION
     Dosage: UNK
  9. HUMIRA [Suspect]
     Active Substance: ADALIMUMAB
     Indication: COLITIS ULCERATIVE
     Dosage: UNK
     Route: 058
  10. INFLECTRA [Suspect]
     Active Substance: INFLIXIMAB-DYYB
     Dosage: 500 MILLIGRAM; FREQUENCY: 500 MILLIGRAM
     Dates: start: 20210419, end: 2021
  11. INFLECTRA [Suspect]
     Active Substance: INFLIXIMAB-DYYB
     Dosage: 500 MG; FREQUENCY: 0, 2, 6 WEEKS THEN EVERY 8 WEEKS
     Route: 042
     Dates: start: 20210221, end: 20210221
  12. ENTYVIO [Suspect]
     Active Substance: VEDOLIZUMAB
     Indication: PRODUCT USED FOR UNKNOWN INDICATION
     Dosage: UNK

REACTIONS (12)
  - Drug intolerance [Unknown]
  - Frequent bowel movements [Unknown]
  - Rectal haemorrhage [Unknown]
  - Condition aggravated [Not Recovered/Not Resolved]
  - Feeling hot [Recovered/Resolved]
  - Drug ineffective [Unknown]
  - White blood cell count increased [Unknown]
  - Malaise [Unknown]
  - Dizziness [Recovered/Resolved]
  - Porphyria acute [Not Recovered/Not Resolved]
  - Pancreatitis [Unknown]
  - Nasopharyngitis [Unknown]

NARRATIVE: CASE EVENT DATE: 20201120
